FAERS Safety Report 9428990 (Version 1)
Quarter: 2013Q3

REPORT INFORMATION
  Report Type: Spontaneous
  Country: JP (occurrence: JP)
  Receive Date: 20130730
  Receipt Date: 20130730
  Transmission Date: 20140515
  Serious: Yes (Life-Threatening)
  Sender: FDA-Public Use
  Company Number: JP-PFIZER INC-2013219519

PATIENT
  Age: 72 Year
  Sex: Female

DRUGS (19)
  1. CELECOX [Suspect]
     Indication: PROCEDURAL PAIN
     Dosage: 200 MG, UNKNOWN/D
     Route: 048
     Dates: start: 20130507
  2. WARFARIN [Suspect]
     Dosage: 2 MG, UNKNOWN/D
     Route: 048
     Dates: start: 20110316, end: 20130216
  3. WARFARIN [Suspect]
     Dosage: 2.75 MG, UNKNOWN/D
     Route: 048
     Dates: start: 20130217, end: 20130311
  4. WARFARIN [Suspect]
     Dosage: 2.5 MG, UNKNOWN/D
     Route: 048
     Dates: start: 20130312, end: 20130408
  5. WARFARIN [Suspect]
     Dosage: 2.25 MG, UNKNOWN/D
     Route: 048
     Dates: start: 20130409, end: 20130430
  6. WARFARIN [Suspect]
     Dosage: 2.25 MG, UNKNOWN/D
     Route: 048
     Dates: start: 20130507, end: 20130603
  7. WARFARIN [Suspect]
     Dosage: 2 MG, UNKNOWN/D
     Route: 048
     Dates: start: 20130604, end: 20130703
  8. BAYASPIRIN [Suspect]
     Dosage: 100 MG, 1X/DAY
     Route: 048
     Dates: start: 20130219
  9. LIPITOR [Concomitant]
     Dosage: UNK
     Dates: start: 20130219
  10. NEXIUM [Concomitant]
     Dosage: UNK
     Dates: start: 20130219
  11. PREDONINE [Concomitant]
     Dosage: UNK
     Dates: start: 20130219
  12. LASIX [Concomitant]
     Dosage: UNK
     Route: 048
     Dates: start: 20130219
  13. ALDACTONE-A [Concomitant]
     Dosage: UNK
     Route: 048
     Dates: start: 20130219
  14. URSO [Concomitant]
     Dosage: UNK
     Route: 048
     Dates: start: 20130219
  15. MUCODYNE [Concomitant]
     Dosage: UNK
     Route: 048
     Dates: start: 20130219
  16. FERROMIA [Concomitant]
     Dosage: UNK
     Route: 048
     Dates: start: 20130219
  17. BIOFERMIN [Concomitant]
     Dosage: UNK
     Dates: start: 20130219
  18. AMLODIN [Concomitant]
     Dosage: UNK
     Dates: start: 20130219
  19. FLORID [Concomitant]
     Dosage: UNK
     Dates: start: 20130621, end: 20130627

REACTIONS (2)
  - Intentional drug misuse [Unknown]
  - Haemorrhagic diathesis [Recovered/Resolved]
